FAERS Safety Report 22287365 (Version 1)
Quarter: 2023Q2

REPORT INFORMATION
  Report Type: Spontaneous
  Country: RO (occurrence: RO)
  Receive Date: 20230505
  Receipt Date: 20230505
  Transmission Date: 20230721
  Serious: Yes (Other)
  Sender: FDA-Public Use
  Company Number: RO-SUN PHARMACEUTICAL INDUSTRIES LTD-2023RR-387370

PATIENT
  Age: 63 Year
  Sex: Female

DRUGS (6)
  1. METOPROLOL [Suspect]
     Active Substance: METOPROLOL
     Indication: Product used for unknown indication
     Dosage: 12 GRAM
     Route: 048
  2. DIAZEPAM [Suspect]
     Active Substance: DIAZEPAM
     Indication: Product used for unknown indication
     Dosage: UNK
     Route: 048
  3. DIGOXIN [Suspect]
     Active Substance: DIGOXIN
     Indication: Product used for unknown indication
     Dosage: 7.5 MILLIGRAM
     Route: 048
  4. CHLORZOXAZONE [Suspect]
     Active Substance: CHLORZOXAZONE
     Indication: Product used for unknown indication
     Dosage: UNK
     Route: 048
  5. EPINEPHRINE [Suspect]
     Active Substance: EPINEPHRINE
     Indication: Hypotension
     Dosage: UNK
     Route: 065
  6. ACETAMINOPHEN\TRAMADOL [Suspect]
     Active Substance: ACETAMINOPHEN\TRAMADOL
     Indication: Product used for unknown indication
     Dosage: UNK
     Route: 048

REACTIONS (6)
  - Suicide attempt [Unknown]
  - Somnolence [Recovered/Resolved]
  - Confusional state [Recovered/Resolved]
  - Stress cardiomyopathy [Recovered/Resolved]
  - Intentional overdose [Recovered/Resolved]
  - Poisoning deliberate [Recovered/Resolved]
